FAERS Safety Report 19950847 (Version 1)
Quarter: 2021Q4

REPORT INFORMATION
  Report Type: Spontaneous
  Country: US (occurrence: US)
  Receive Date: 20211014
  Receipt Date: 20211014
  Transmission Date: 20220304
  Serious: No
  Sender: FDA-Public Use
  Company Number: US-BAUSCH-BL-2021-034237

PATIENT
  Sex: Male

DRUGS (3)
  1. XIFAXAN [Suspect]
     Active Substance: RIFAXIMIN
     Indication: Product used for unknown indication
     Route: 065
     Dates: start: 202104
  2. XIFAXAN [Suspect]
     Active Substance: RIFAXIMIN
     Route: 065
     Dates: start: 202106
  3. XIFAXAN [Suspect]
     Active Substance: RIFAXIMIN
     Route: 065
     Dates: start: 2021

REACTIONS (3)
  - Diarrhoea [Recovered/Resolved]
  - Product quality issue [Unknown]
  - Product taste abnormal [Unknown]

NARRATIVE: CASE EVENT DATE: 20210401
